FAERS Safety Report 24010781 (Version 1)
Quarter: 2024Q2

REPORT INFORMATION
  Report Type: Spontaneous
  Country: US (occurrence: None)
  Receive Date: 20240625
  Receipt Date: 20240625
  Transmission Date: 20240716
  Serious: No
  Sender: FDA-Public Use
  Company Number: None

PATIENT
  Age: 75 Year
  Sex: Female

DRUGS (1)
  1. CAPECITABINE [Suspect]
     Active Substance: CAPECITABINE
     Indication: Breast cancer
     Dosage: OTHER QUANTITY : TK 3 T ;?FREQUENCY : AS DIRECTED;?
     Route: 048
     Dates: start: 20231129

REACTIONS (3)
  - Dyspnoea [None]
  - Abdominal distension [None]
  - Therapy interrupted [None]
